FAERS Safety Report 10605736 (Version 1)
Quarter: 2014Q4

REPORT INFORMATION
  Report Type: Spontaneous
  Country: US (occurrence: US)
  Receive Date: 20141125
  Receipt Date: 20141125
  Transmission Date: 20150529
  Serious: Yes (Other)
  Sender: FDA-Public Use
  Company Number: US-BRISTOL-MYERS SQUIBB COMPANY-21608393

PATIENT
  Age: 64 Year
  Sex: Female
  Weight: 126.07 kg

DRUGS (2)
  1. FARXIGA [Suspect]
     Active Substance: DAPAGLIFLOZIN PROPANEDIOL
     Indication: TYPE 2 DIABETES MELLITUS
     Dosage: INTER FOR 10 DAYS, THEN RESUMED WITH DECREASED DOSE TO 2.5MG
     Route: 048
     Dates: start: 20141113
  2. INSULIN [Concomitant]
     Active Substance: INSULIN NOS

REACTIONS (4)
  - Pneumonia [Unknown]
  - Weight decreased [Unknown]
  - Kidney infection [Unknown]
  - Nasopharyngitis [Unknown]
